FAERS Safety Report 5782486-3 (Version None)
Quarter: 2008Q2

REPORT INFORMATION
  Report Type: 
  Country: None (occurrence: None)
  Receive Date: 20080623
  Receipt Date: 20080620
  Transmission Date: 20081010
  Serious: Yes (Life-Threatening, Hospitalization)
  Sender: FDA-Public Use
  Company Number: PHEH2008US04123

PATIENT
  Age: 47 Year
  Sex: Female
  Weight: 56.689 kg

DRUGS (15)
  1. EXJADE [Suspect]
     Indication: IRON OVERLOAD
     Dosage: 1500 MG, QD
     Route: 048
     Dates: start: 20060304, end: 20070104
  2. EXJADE [Suspect]
     Indication: SERUM FERRITIN INCREASED
     Dosage: 1500 MG, QD
     Route: 048
     Dates: start: 20070506, end: 20070707
  3. ATENOLOL [Concomitant]
  4. AMLODIPINE [Concomitant]
  5. LISINOPRIL [Concomitant]
  6. LOSARTAN POTASSIUM [Concomitant]
  7. LANTHANUM CARBONATE [Concomitant]
  8. ALLOPURINOL [Concomitant]
  9. NEPHRO-VITE [Concomitant]
  10. FOLIC ACID [Concomitant]
  11. DIALYSATE [Concomitant]
     Dosage: 2.5MEQ/L
  12. DIALYSATE [Concomitant]
     Dosage: 3.5 MEQ/L
  13. PARICALCITOL [Concomitant]
  14. DARBEPOETIN ALFA [Concomitant]
  15. DIATX [Concomitant]

REACTIONS (1)
  - HYPOCALCAEMIA [None]
